FAERS Safety Report 9768959 (Version 1)
Quarter: 2013Q4

REPORT INFORMATION
  Report Type: Spontaneous
  Country: JP (occurrence: None)
  Receive Date: 20131216
  Receipt Date: 20131216
  Transmission Date: 20140711
  Serious: Yes (Hospitalization)
  Sender: FDA-Public Use
  Company Number: JP-ALKEM-000437

PATIENT
  Age: 49 Year
  Sex: Male

DRUGS (3)
  1. MYCOPHENOLATE MOFETIL [Suspect]
     Indication: IMMUNOSUPPRESSION
  2. TACROLIMUS [Suspect]
     Indication: IMMUNOSUPPRESSION
     Route: 048
  3. METHYLPREDNISOLON [Suspect]
     Indication: IMMUNOSUPPRESSION
     Route: 041

REACTIONS (5)
  - Pulmonary embolism [None]
  - Staphylococcal sepsis [None]
  - Subcutaneous abscess [None]
  - Transplant rejection [None]
  - Decreased appetite [None]
